FAERS Safety Report 23220127 (Version 1)
Quarter: 2023Q4

REPORT INFORMATION
  Report Type: Spontaneous
  Country: US (occurrence: US)
  Receive Date: 20231123
  Receipt Date: 20231123
  Transmission Date: 20240109
  Serious: Yes (Hospitalization)
  Sender: FDA-Public Use
  Company Number: US-drreddys-LIT/USA/23/0186806

PATIENT
  Age: 23 Year
  Sex: Male

DRUGS (9)
  1. PROPOFOL [Interacting]
     Active Substance: PROPOFOL
     Indication: Schizoaffective disorder bipolar type
  2. QUETIAPINE [Interacting]
     Active Substance: QUETIAPINE
     Indication: Schizoaffective disorder bipolar type
  3. LORAZEPAM [Interacting]
     Active Substance: LORAZEPAM
     Indication: Schizoaffective disorder bipolar type
  4. KETAMINE [Interacting]
     Active Substance: KETAMINE
     Indication: Schizoaffective disorder bipolar type
  5. VALPROATE [Interacting]
     Active Substance: VALPROIC ACID
     Indication: Schizoaffective disorder bipolar type
  6. PALIPERIDONE [Interacting]
     Active Substance: PALIPERIDONE
     Indication: Schizoaffective disorder bipolar type
  7. GUANFACINE [Interacting]
     Active Substance: GUANFACINE
     Indication: Schizoaffective disorder bipolar type
  8. HALOPERIDOL [Interacting]
     Active Substance: HALOPERIDOL
     Indication: Schizoaffective disorder bipolar type
  9. LITHIUM [Interacting]
     Active Substance: LITHIUM
     Indication: Schizoaffective disorder bipolar type

REACTIONS (2)
  - Nephrogenic diabetes insipidus [Recovering/Resolving]
  - Drug interaction [Recovering/Resolving]
